FAERS Safety Report 8220407-4 (Version None)
Quarter: 2012Q1

REPORT INFORMATION
  Report Type: 
  Country: None (occurrence: None)
  Receive Date: 20120316
  Receipt Date: 20120229
  Transmission Date: 20120608
  Serious: Yes (Other)
  Sender: FDA-Public Use
  Company Number: US-1191029

PATIENT
  Age: 75 Year
  Sex: Female

DRUGS (2)
  1. CYCLOSPORIN A 0.5% EYE DROPS (NOT SPECIFIED) [Suspect]
     Indication: KERATITIS
     Dosage: (FOUR TIMES DAILY OPHTHALMIC)
     Route: 047
  2. PREDNISOLONE ACETATE [Suspect]
     Indication: TRANSPLANT REJECTION
     Dosage: (HOURLY OPTHALMIC), (ONCE PER DAY OPHTHALMIC)
     Route: 047

REACTIONS (9)
  - CORNEAL INFILTRATES [None]
  - BLEPHARITIS [None]
  - EYE INFECTION STAPHYLOCOCCAL [None]
  - CORNEAL THINNING [None]
  - CORNEAL SCAR [None]
  - EYE PAIN [None]
  - KERATITIS [None]
  - INCISION SITE ABSCESS [None]
  - KERATITIS BACTERIAL [None]
